FAERS Safety Report 4934221-6 (Version None)
Quarter: 2006Q1

REPORT INFORMATION
  Report Type: 
  Country: None (occurrence: None)
  Receive Date: 20060307
  Receipt Date: 20030919
  Transmission Date: 20060701
  Serious: Yes (Death, Hospitalization, Other)
  Sender: FDA-Public Use
  Company Number: 2003CG01345

PATIENT
  Age: 16120 Day
  Sex: Female

DRUGS (10)
  1. IRESSA [Suspect]
     Indication: OVARIAN CANCER
     Route: 048
     Dates: start: 20020924, end: 20021024
  2. IRESSA [Suspect]
     Route: 048
     Dates: start: 20021025, end: 20030918
  3. TAXOL [Suspect]
     Indication: OVARIAN CANCER
     Route: 042
     Dates: start: 20020924, end: 20030227
  4. PARAPLATIN [Suspect]
     Indication: OVARIAN CANCER
     Route: 042
     Dates: start: 20020924, end: 20021127
  5. TAXOL [Concomitant]
     Route: 042
     Dates: start: 20001106, end: 20010608
  6. CARBOPLATIN [Concomitant]
     Indication: OVARIAN CANCER
     Route: 042
     Dates: start: 20001106, end: 20010608
  7. ENDOXAN [Concomitant]
     Indication: OVARIAN CANCER
     Dates: start: 20010717, end: 20010717
  8. ENDOXAN [Concomitant]
     Dosage: CUMULATIVE DOSE : 8800 MG
     Dates: start: 20010823, end: 20010823
  9. ADRIAMYCIN PFS [Concomitant]
     Indication: OVARIAN CANCER
     Dates: start: 20010823, end: 20010823
  10. OXALIPLATIN [Concomitant]
     Indication: OVARIAN CANCER
     Route: 042
     Dates: start: 20021224, end: 20030227

REACTIONS (1)
  - ACUTE LYMPHOCYTIC LEUKAEMIA [None]
